FAERS Safety Report 22326037 (Version 1)
Quarter: 2023Q2

REPORT INFORMATION
  Report Type: Spontaneous
  Country: US (occurrence: US)
  Receive Date: 20230516
  Receipt Date: 20230516
  Transmission Date: 20230722
  Serious: Yes (Hospitalization)
  Sender: FDA-Public Use
  Company Number: US-MYLANLABS-2023M1035382

PATIENT
  Sex: Female

DRUGS (2)
  1. GABAPENTIN [Suspect]
     Active Substance: GABAPENTIN
     Indication: Product used for unknown indication
     Dosage: UNK
     Route: 065
  2. METHOTREXATE [Concomitant]
     Active Substance: METHOTREXATE
     Indication: Chemotherapy
     Dosage: UNK
     Route: 065

REACTIONS (5)
  - Tremor [Unknown]
  - Pyrexia [Unknown]
  - Fatigue [Unknown]
  - Asthenia [Unknown]
  - Respiratory tract infection viral [Unknown]
